FAERS Safety Report 7401907-3 (Version None)
Quarter: 2011Q2

REPORT INFORMATION
  Report Type: 
  Country: None (occurrence: None)
  Receive Date: 20110408
  Receipt Date: 20110328
  Transmission Date: 20111010
  Serious: Yes (Hospitalization, Other)
  Sender: FDA-Public Use
  Company Number: US-JNJFOC-20050202682

PATIENT
  Sex: Female

DRUGS (2)
  1. DURAGESIC [Suspect]
     Indication: PAIN
     Route: 062
  2. DURAGESIC [Suspect]
     Route: 062

REACTIONS (10)
  - LIMB OPERATION [None]
  - SKIN IRRITATION [None]
  - APPLICATION SITE ERYTHEMA [None]
  - MENISCUS LESION [None]
  - GASTROOESOPHAGEAL REFLUX DISEASE [None]
  - APPLICATION SITE IRRITATION [None]
  - APPLICATION SITE REACTION [None]
  - PRODUCT QUALITY ISSUE [None]
  - APPLICATION SITE VESICLES [None]
  - FOOT OPERATION [None]
